FAERS Safety Report 16997438 (Version 1)
Quarter: 2019Q4

REPORT INFORMATION
  Report Type: Spontaneous
  Country: CA (occurrence: CA)
  Receive Date: 20191106
  Receipt Date: 20191106
  Transmission Date: 20200122
  Serious: Yes (Death, Life-Threatening, Hospitalization)
  Sender: FDA-Public Use
  Company Number: CA-TEVA-2019-CA-1131260

PATIENT
  Age: 37 Year
  Sex: Female

DRUGS (3)
  1. LUPIN-ESTRADIOL [Suspect]
     Active Substance: ESTRADIOL
     Indication: INFERTILITY
     Route: 065
  2. TEVA-PROGESTERONE [Suspect]
     Active Substance: PROGESTERONE
     Indication: INFERTILITY
     Dosage: 800 MILLIGRAM DAILY;
     Route: 048
  3. TEVA-PROGESTERONE [Suspect]
     Active Substance: PROGESTERONE
     Dosage: 8 DOSAGE FORMS DAILY;
     Route: 048

REACTIONS (2)
  - Cerebrovascular accident [Fatal]
  - Haemorrhage [Fatal]
